FAERS Safety Report 4639203-X (Version None)
Quarter: 2005Q2

REPORT INFORMATION
  Report Type: 
  Country: None (occurrence: None)
  Receive Date: 20050418
  Receipt Date: 20050401
  Transmission Date: 20051028
  Serious: Yes (Hospitalization)
  Sender: FDA-Public Use
  Company Number: 200467

PATIENT
  Age: 27 Year
  Sex: Female
  Weight: 72 kg

DRUGS (6)
  1. HERCEPTIN [Suspect]
     Indication: BREAST CANCER METASTATIC
     Dosage: SEE IMAGE
     Route: 042
     Dates: start: 20030318, end: 20030318
  2. HERCEPTIN [Suspect]
     Indication: BREAST CANCER METASTATIC
     Dosage: SEE IMAGE
     Route: 042
     Dates: start: 20030325
  3. DOCETAXEL (DOCETAXEL) [Suspect]
     Indication: BREAST CANCER METASTATIC
     Dosage: 140 MG, Q3W, INTRAVENOUS
     Route: 042
     Dates: start: 20030319
  4. CARBOPLATIN [Suspect]
     Indication: BREAST CANCER METASTATIC
     Dosage: 900 MG, Q3W, INTRAVENOUS
     Route: 042
     Dates: start: 20030319
  5. DEXAMETHAXONE (DEXAMENTHASONE) [Concomitant]
  6. PROCHLORPERAZINE MALEATE [Concomitant]

REACTIONS (3)
  - MYALGIA [None]
  - NAUSEA [None]
  - NEUTROPENIA [None]
